FAERS Safety Report 7374664-7 (Version None)
Quarter: 2011Q1

REPORT INFORMATION
  Report Type: 
  Country: None (occurrence: None)
  Receive Date: 20110325
  Receipt Date: 20100629
  Transmission Date: 20110831
  Serious: No
  Sender: FDA-Public Use
  Company Number: US-MYLANLABS-2010S1011718

PATIENT
  Age: 51 Year
  Sex: Female
  Weight: 86.18 kg

DRUGS (3)
  1. FENTANYL-100 [Suspect]
     Dosage: CHANGED Q72H
     Route: 062
     Dates: start: 20100625
  2. WARFARIN [Concomitant]
     Indication: COAGULOPATHY
  3. FENTANYL-100 [Suspect]
     Indication: PAIN
     Dosage: CHANGED PATCHES Q3D
     Route: 062
     Dates: end: 20100623

REACTIONS (6)
  - AGITATION [None]
  - RESTLESS LEGS SYNDROME [None]
  - PYREXIA [None]
  - MYALGIA [None]
  - TREMOR [None]
  - FEELING JITTERY [None]
